FAERS Safety Report 9254028 (Version 1)
Quarter: 2013Q2

REPORT INFORMATION
  Report Type: Spontaneous
  Country: GB (occurrence: None)
  Receive Date: 20130419
  Receipt Date: 20130419
  Transmission Date: 20140414
  Serious: Yes (Hospitalization, Other)
  Sender: FDA-Public Use
  Company Number: FK201301166

PATIENT
  Age: 71 Year
  Sex: Female
  Weight: 58.4 kg

DRUGS (3)
  1. CARBOPLATIN [Suspect]
     Indication: PRODUCT USED FOR UNKNOWN INDICATION
     Dosage: 450 MG, INTRAVENOUS (NOT OTHERWISE SPECIFIED)
     Route: 042
     Dates: start: 20130327
  2. HYDROCORTISONE (HYDROCORTISONE) [Concomitant]
  3. PIRITON (CHLORPHENAMINE MALEATE) [Concomitant]

REACTIONS (3)
  - Blood pressure decreased [None]
  - Dizziness [None]
  - Nausea [None]
